FAERS Safety Report 24159008 (Version 3)
Quarter: 2024Q3

REPORT INFORMATION
  Report Type: Spontaneous
  Country: US (occurrence: US)
  Receive Date: 20240731
  Receipt Date: 20240809
  Transmission Date: 20241016
  Serious: Yes (Other)
  Sender: KARYOPHARM THERAPEUTICS
  Company Number: US-KARYOPHARM-2024KPT001377

PATIENT

DRUGS (12)
  1. XPOVIO [Suspect]
     Active Substance: SELINEXOR
     Indication: Plasma cell myeloma refractory
     Dosage: 60 MG, WEEKLY
     Route: 048
     Dates: start: 20240726
  2. XPOVIO [Suspect]
     Active Substance: SELINEXOR
     Dosage: 40 MG
     Route: 048
     Dates: end: 20240802
  3. DEXAMETHASONE [Concomitant]
     Active Substance: DEXAMETHASONE
  4. ESTRADIOL [Concomitant]
     Active Substance: ESTRADIOL
  5. LEVOTHYROXINE [Concomitant]
     Active Substance: LEVOTHYROXINE\LEVOTHYROXINE SODIUM
  6. OLANZAPINE [Concomitant]
     Active Substance: OLANZAPINE
  7. PROCHLORPERAZINE [Concomitant]
     Active Substance: PROCHLORPERAZINE
  8. PROGESTERONE [Concomitant]
     Active Substance: PROGESTERONE
  9. VALACYCLOVIR [Concomitant]
     Active Substance: VALACYCLOVIR HYDROCHLORIDE
  10. ZOFRAN [Concomitant]
     Active Substance: ONDANSETRON HYDROCHLORIDE
  11. MUPIROCIN [Concomitant]
     Active Substance: MUPIROCIN
  12. SODIUM FLUORIDE [Concomitant]
     Active Substance: SODIUM FLUORIDE\SODIUM MONOFLUOROPHOSPHATE

REACTIONS (9)
  - Hypotension [Unknown]
  - Dehydration [Not Recovered/Not Resolved]
  - Night sweats [Not Recovered/Not Resolved]
  - Abnormal dreams [Unknown]
  - Back pain [Not Recovered/Not Resolved]
  - Arthralgia [Not Recovered/Not Resolved]
  - Fatigue [Unknown]
  - Nausea [Unknown]
  - Asthenia [Recovering/Resolving]

NARRATIVE: CASE EVENT DATE: 20240101
